FAERS Safety Report 7426339-3 (Version None)
Quarter: 2011Q2

REPORT INFORMATION
  Report Type: 
  Country: None (occurrence: None)
  Receive Date: 20110420
  Receipt Date: 20110414
  Transmission Date: 20111010
  Serious: Yes (Hospitalization)
  Sender: FDA-Public Use
  Company Number: B0713790A

PATIENT
  Sex: Male
  Weight: 55 kg

DRUGS (7)
  1. VICCLOX [Concomitant]
     Dosage: 1000MG PER DAY
     Route: 048
     Dates: start: 20071105, end: 20071116
  2. DIFLUCAN [Concomitant]
     Dosage: 200MG PER DAY
     Route: 048
     Dates: start: 20071105, end: 20071116
  3. TAKEPRON [Suspect]
     Dosage: 60MG PER DAY
     Route: 042
     Dates: start: 20071114, end: 20071118
  4. KYTRIL [Concomitant]
     Dosage: 6MG PER DAY
     Route: 042
     Dates: start: 20071105, end: 20071106
  5. MEROPENEM [Suspect]
     Dosage: 2G PER DAY
     Route: 042
     Dates: start: 20071116, end: 20071122
  6. ALKERAN [Suspect]
     Indication: STEM CELL TRANSPLANT
     Dosage: 100MGM2 PER DAY
     Route: 042
     Dates: start: 20071105, end: 20071106
  7. CRAVIT [Concomitant]
     Dosage: 300MG PER DAY
     Route: 048
     Dates: start: 20071105, end: 20071116

REACTIONS (1)
  - FEBRILE NEUTROPENIA [None]
